FAERS Safety Report 7682510-7 (Version None)
Quarter: 2011Q3

REPORT INFORMATION
  Report Type: 
  Country: None (occurrence: None)
  Receive Date: 20110815
  Receipt Date: 20110803
  Transmission Date: 20111222
  Serious: Yes (Other)
  Sender: FDA-Public Use
  Company Number: PHHY2011JP70500

PATIENT
  Age: 67 Year
  Sex: Male

DRUGS (5)
  1. GABAPENTIN [Concomitant]
     Dosage: 600 MG, UNK
  2. LAMICTAL [Concomitant]
     Dosage: 300 MG, UNK
  3. ZONISAMIDE [Concomitant]
     Dosage: 200 MG, UNK
  4. TOPIRAMATE [Concomitant]
     Dosage: 100 MG, UNK
  5. CARBAMAZEPINE [Suspect]
     Indication: COMPLEX PARTIAL SEIZURES
     Dosage: 1200 MG, DAILY

REACTIONS (4)
  - SOMNOLENCE [None]
  - DISTURBANCE IN ATTENTION [None]
  - ASTHENIA [None]
  - CONVULSION [None]
